FAERS Safety Report 8459489-3 (Version None)
Quarter: 2012Q2

REPORT INFORMATION
  Report Type: 
  Country: None (occurrence: None)
  Receive Date: 20120622
  Receipt Date: 20120614
  Transmission Date: 20120825
  Serious: Yes (Disabling)
  Sender: FDA-Public Use
  Company Number: US-US-EMD SERONO, INC.-230310M08USA

PATIENT
  Sex: Female
  Weight: 102 kg

DRUGS (4)
  1. REBIF [Suspect]
     Indication: MULTIPLE SCLEROSIS
     Route: 058
     Dates: start: 20071010, end: 20080901
  2. REBIF [Suspect]
     Route: 058
     Dates: start: 20090501, end: 20120201
  3. REBIF [Suspect]
     Route: 058
     Dates: start: 20120301
  4. TYSABRI [Concomitant]
     Indication: PRODUCT USED FOR UNKNOWN INDICATION

REACTIONS (3)
  - NORMAL NEWBORN [None]
  - MULTIPLE SCLEROSIS RELAPSE [None]
  - MATERNAL EXPOSURE TIMING UNSPECIFIED [None]
